FAERS Safety Report 8428042-X (Version None)
Quarter: 2012Q2

REPORT INFORMATION
  Report Type: 
  Country: None (occurrence: None)
  Receive Date: 20120611
  Receipt Date: 20120531
  Transmission Date: 20120825
  Serious: Yes (Hospitalization)
  Sender: FDA-Public Use
  Company Number: FR-ASTRAZENECA-2012SE37123

PATIENT
  Age: 62 Year
  Sex: Female
  Weight: 48 kg

DRUGS (4)
  1. NEXIUM [Suspect]
     Route: 048
     Dates: start: 20111101, end: 20120412
  2. FLECTOR [Suspect]
     Route: 003
     Dates: start: 20110101, end: 20120401
  3. FLUTICASONE PROPIONATE/SALMETEROL [Concomitant]
  4. SINGULAIR [Suspect]
     Route: 048
     Dates: start: 20110101, end: 20120101

REACTIONS (1)
  - EOSINOPHILIC FASCIITIS [None]
